FAERS Safety Report 21278848 (Version 1)
Quarter: 2022Q3

REPORT INFORMATION
  Report Type: Spontaneous
  Country: US (occurrence: US)
  Receive Date: 20220901
  Receipt Date: 20220901
  Transmission Date: 20221027
  Serious: Yes (Other)
  Sender: FDA-Public Use
  Company Number: US-BRISTOL-MYERS SQUIBB COMPANY-2022-096157

PATIENT
  Age: 70 Year
  Sex: Male
  Weight: 87.09 kg

DRUGS (1)
  1. POMALYST [Suspect]
     Active Substance: POMALIDOMIDE
     Indication: Plasma cell myeloma
     Dosage: 21DAYS ON, 7DAYS OFF
     Route: 048
     Dates: start: 20220804

REACTIONS (1)
  - Neutropenia [Unknown]
